FAERS Safety Report 4501746-7 (Version None)
Quarter: 2004Q3

REPORT INFORMATION
  Report Type: 
  Country: None (occurrence: None)
  Receive Date: 20040928
  Receipt Date: 20040830
  Transmission Date: 20050211
  Serious: No
  Sender: FDA-Public Use
  Company Number: 04P-163-0271894-00

PATIENT
  Age: 51 Year
  Sex: Female
  Weight: 88.905 kg

DRUGS (13)
  1. HUMIRA [Suspect]
     Indication: RHEUMATOID ARTHRITIS
     Dosage: 40 MG, 1 IN 2 WK, SUCUTANEOUS
     Route: 058
     Dates: start: 20040601
  2. PREDNISONE [Concomitant]
  3. SULFASALAZINE [Concomitant]
  4. WARFARIN SODIUM [Concomitant]
  5. LEVOTHYROXINE SODIUM [Concomitant]
  6. DIOVAN [Concomitant]
  7. TRAZODONE HCL [Concomitant]
  8. CELECOXIB [Concomitant]
  9. ZOLPIDEM TARTRATE [Concomitant]
  10. METFORMIN HCL [Concomitant]
  11. AMITRIPTYLINE [Concomitant]
  12. BUPROPION HYDROCHLORIDE [Concomitant]
  13. ALENDRONATE SODIUM [Concomitant]

REACTIONS (1)
  - INJECTION SITE PAIN [None]
